FAERS Safety Report 6200593-8 (Version None)
Quarter: 2009Q2

REPORT INFORMATION
  Report Type: 
  Country: None (occurrence: None)
  Receive Date: 20090522
  Receipt Date: 20090512
  Transmission Date: 20091009
  Serious: Yes (Other)
  Sender: FDA-Public Use
  Company Number: US-AMGEN-QUU346745

PATIENT
  Sex: Female

DRUGS (5)
  1. ENBREL [Suspect]
     Indication: RHEUMATOID ARTHRITIS
     Route: 058
     Dates: start: 20041101
  2. METHOTREXATE [Concomitant]
     Route: 048
     Dates: start: 20050101, end: 20070101
  3. PREDNISONE [Concomitant]
     Route: 048
     Dates: start: 20070501
  4. LOVENOX [Concomitant]
     Route: 058
     Dates: start: 20070501
  5. VITAMIN TAB [Concomitant]
     Route: 048
     Dates: start: 20070501

REACTIONS (5)
  - INJECTION SITE ERYTHEMA [None]
  - PREMATURE LABOUR [None]
  - PREMATURE RUPTURE OF MEMBRANES [None]
  - RHEUMATOID ARTHRITIS [None]
  - THERAPEUTIC RESPONSE DECREASED [None]
